FAERS Safety Report 20409648 (Version 2)
Quarter: 2022Q1

REPORT INFORMATION
  Report Type: Spontaneous
  Country: TR (occurrence: TR)
  Receive Date: 20220201
  Receipt Date: 20220209
  Transmission Date: 20220423
  Serious: Yes (Other)
  Sender: FDA-Public Use
  Company Number: TR-GILEAD-2022-0567696

PATIENT
  Age: 46 Year
  Sex: Male

DRUGS (1)
  1. VIREAD [Suspect]
     Active Substance: TENOFOVIR DISOPROXIL FUMARATE
     Indication: Hepatitis B
     Dosage: 245 DOSAGE FORM, QD
     Route: 065
     Dates: end: 20211124

REACTIONS (2)
  - Osteoporosis [Unknown]
  - Glomerular filtration rate decreased [Unknown]
